FAERS Safety Report 20636714 (Version 1)
Quarter: 2022Q1

REPORT INFORMATION
  Report Type: Spontaneous
  Country: US (occurrence: US)
  Receive Date: 20220325
  Receipt Date: 20220325
  Transmission Date: 20220423
  Serious: Yes (Hospitalization, Other)
  Sender: FDA-Public Use
  Company Number: US-ALXN-A202203672

PATIENT
  Sex: Female

DRUGS (1)
  1. ULTOMIRIS [Suspect]
     Active Substance: RAVULIZUMAB-CWVZ
     Indication: Atypical haemolytic uraemic syndrome
     Dosage: 3000 MG EVERY 8 WEEKS
     Route: 042

REACTIONS (2)
  - Crohn^s disease [Unknown]
  - Meningococcal infection [Recovering/Resolving]

NARRATIVE: CASE EVENT DATE: 20200101
